FAERS Safety Report 4699195-4 (Version None)
Quarter: 2005Q2

REPORT INFORMATION
  Report Type: 
  Country: None (occurrence: None)
  Receive Date: 20050624
  Receipt Date: 20050622
  Transmission Date: 20051028
  Serious: Yes (Other)
  Sender: FDA-Public Use
  Company Number: CA-MERCK-0506CAN00151

PATIENT
  Age: 76 Year
  Sex: Female

DRUGS (1)
  1. FOSAMAX [Suspect]
     Route: 048
     Dates: start: 20030101

REACTIONS (2)
  - RENAL DISORDER [None]
  - RENAL NEOPLASM [None]
